FAERS Safety Report 4562885-8 (Version None)
Quarter: 2005Q1

REPORT INFORMATION
  Report Type: 
  Country: None (occurrence: None)
  Receive Date: 20050121
  Receipt Date: 20050110
  Transmission Date: 20050727
  Serious: Yes (Hospitalization)
  Sender: FDA-Public Use
  Company Number: 2005010846

PATIENT
  Age: 66 Year
  Sex: Male

DRUGS (3)
  1. IRINOTECAN HCL [Suspect]
     Indication: PROSTATE CANCER
     Dosage: 180 MG/M*2 (CYCLIC; INTERVAL: ON DAY 1 EVERY 2 WEEKS) , INTRAVENOUS
     Route: 042
  2. FLUOROURACIL [Suspect]
     Indication: PROSTATE CANCER
     Dosage: 400 MG/M*2 (CYCLIC; INTERVAL:EVERY 2 WEEKS) INTRAVENOUS : 600 MG/M*2 (CYCLIC: INTERVAL:DAYS 1,2, EVE
     Route: 042
  3. CALCIUM FOLINATE (CALCIUM FOLINATE) [Suspect]
     Indication: PROSTATE CANCER
     Dosage: 200 MG/M*2 (CYCLIC: INTERVAL: DAYS 1, 2, EVERY 2 WEEKS), INTRAVENOUS
     Route: 042

REACTIONS (11)
  - BLOOD LACTATE DEHYDROGENASE INCREASED [None]
  - FATIGUE [None]
  - HYPERPHOSPHATAEMIA [None]
  - HYPERURICAEMIA [None]
  - HYPOCALCAEMIA [None]
  - HYPOCHROMASIA [None]
  - METABOLIC ACIDOSIS [None]
  - PO2 DECREASED [None]
  - RENAL FAILURE ACUTE [None]
  - SUDDEN CARDIAC DEATH [None]
  - TUMOUR LYSIS SYNDROME [None]
